FAERS Safety Report 15649619 (Version 2)
Quarter: 2018Q4

REPORT INFORMATION
  Report Type: Spontaneous
  Country: IT (occurrence: IT)
  Receive Date: 20181122
  Receipt Date: 20181228
  Transmission Date: 20190205
  Serious: Yes (Hospitalization, Other)
  Sender: FDA-Public Use
  Company Number: IT-BAXTER-2018BAX026607

PATIENT
  Age: 70 Year
  Sex: Female
  Weight: 57.5 kg

DRUGS (13)
  1. CARDURA [Concomitant]
     Active Substance: DOXAZOSIN MESYLATE
     Indication: BLOOD PRESSURE MANAGEMENT
     Dosage: 1 TABLET AT 08 A.M.
     Route: 065
     Dates: start: 20171010
  2. IDEOS [Concomitant]
     Active Substance: CALCIUM CARBONATE\CHOLECALCIFEROL
     Indication: MINERAL SUPPLEMENTATION
     Dosage: 500 MG+400 IUA T 10 AM + 1 TABLET AT 05 PM
     Route: 065
  3. ZYLORIC [Concomitant]
     Active Substance: ALLOPURINOL
     Indication: HYPOURICAEMIA
     Dosage: 1/2 TABLET
     Route: 065
     Dates: start: 20161205
  4. FOLINA [Concomitant]
     Active Substance: FOLIC ACID
     Indication: ANAEMIA
     Dosage: 1 TABLET AT 08 AM
     Route: 065
     Dates: start: 20170803
  5. IDEOS [Concomitant]
     Active Substance: CALCIUM CARBONATE\CHOLECALCIFEROL
     Indication: VITAMIN SUPPLEMENTATION
  6. MAALOX ANTACID [Concomitant]
     Active Substance: ALUMINUM HYDROXIDE\DIMETHICONE\MAGNESIUM HYDROXIDE
     Indication: CHELATION THERAPY
     Dosage: 2 SPOONS X 2/DAY
     Route: 065
     Dates: start: 20180307
  7. RENVELA [Concomitant]
     Active Substance: SEVELAMER CARBONATE
     Indication: CHELATION THERAPY
     Dosage: 2, 4 GRAM 1 SACHET X 2
     Route: 065
     Dates: start: 20180724
  8. RENVELA [Concomitant]
     Active Substance: SEVELAMER CARBONATE
     Dosage: 1 SACHET X 3
     Route: 065
     Dates: start: 20180810
  9. EXTRANEAL [Suspect]
     Active Substance: CALCIUM CHLORIDE\ICODEXTRIN\MAGNESIUM CHLORIDE\SODIUM CHLORIDE\SODIUM LACTATE
     Indication: PERITONEAL DIALYSIS
     Route: 033
     Dates: start: 20180724, end: 20180820
  10. MIRCERA [Concomitant]
     Active Substance: METHOXY POLYETHYLENE GLYCOL-EPOETIN BETA
     Indication: ANAEMIA
     Route: 058
     Dates: start: 20180724
  11. ZEMPLAR [Concomitant]
     Active Substance: PARICALCITOL
     Indication: HYPERPARATHYROIDISM SECONDARY
     Route: 065
     Dates: start: 20180307
  12. LASIX [Concomitant]
     Active Substance: FUROSEMIDE
     Indication: DIURETIC THERAPY
     Dosage: 1/2 TABLET X 2 AT 08 A.M.-04 P.M
     Route: 065
     Dates: start: 20180721
  13. ATENOLOL. [Concomitant]
     Active Substance: ATENOLOL
     Indication: BLOOD PRESSURE MANAGEMENT
     Dosage: 1/4 TABLET AT 8 AM
     Route: 048
     Dates: start: 20160816

REACTIONS (4)
  - Staphylococcal infection [Unknown]
  - Catheter site infection [Unknown]
  - Leukopenia [Recovered/Resolved]
  - Asthenia [Unknown]

NARRATIVE: CASE EVENT DATE: 20180728
